FAERS Safety Report 7760035-8 (Version None)
Quarter: 2011Q3

REPORT INFORMATION
  Report Type: 
  Country: None (occurrence: None)
  Receive Date: 20110919
  Receipt Date: 20110906
  Transmission Date: 20111222
  Serious: Yes (Life-Threatening, Other)
  Sender: FDA-Public Use
  Company Number: US-BAYER-201041668NA

PATIENT
  Age: 36 Year
  Sex: Female

DRUGS (3)
  1. YASMIN [Suspect]
     Indication: PRODUCT USED FOR UNKNOWN INDICATION
     Route: 048
  2. PEPCID AC [Concomitant]
     Indication: PAIN
     Dosage: UNK UNK, PRN
     Route: 048
  3. YAZ [Suspect]
     Indication: PRODUCT USED FOR UNKNOWN INDICATION
     Route: 048

REACTIONS (2)
  - GALLBLADDER DISORDER [None]
  - CHOLELITHIASIS [None]
